FAERS Safety Report 11695787 (Version 1)
Quarter: 2015Q4

REPORT INFORMATION
  Report Type: Spontaneous
  Country: US (occurrence: None)
  Receive Date: 20151103
  Receipt Date: 20151103
  Transmission Date: 20160304
  Serious: No
  Sender: FDA-Public Use
  Company Number: None

PATIENT
  Age: 83 Year
  Sex: Male
  Weight: 84.1 kg

DRUGS (1)
  1. SULFAMETHOXAZOLE/TREIMETHOPRIM [Suspect]
     Active Substance: SULFAMETHOXAZOLE\TRIMETHOPRIM
     Indication: BURSITIS
     Dosage: 800/160 MG
     Route: 048
     Dates: start: 20151021, end: 20151029

REACTIONS (3)
  - Blood urea increased [None]
  - Blood creatinine increased [None]
  - Blood potassium increased [None]

NARRATIVE: CASE EVENT DATE: 20151029
